FAERS Safety Report 16480282 (Version 1)
Quarter: 2019Q2

REPORT INFORMATION
  Report Type: Report from Study
  Country: US (occurrence: US)
  Receive Date: 20190626
  Receipt Date: 20190626
  Transmission Date: 20190711
  Serious: Yes (Death)
  Sender: FDA-Public Use
  Company Number: US-EXELIXIS-CABO-19022123

PATIENT
  Sex: Female
  Weight: 55.33 kg

DRUGS (4)
  1. CABOMETYX [Suspect]
     Active Substance: CABOZANTINIB S-MALATE
     Indication: BREAST CANCER
  2. CABOMETYX [Suspect]
     Active Substance: CABOZANTINIB S-MALATE
     Indication: RENAL CANCER
     Dosage: 60 MG, QD
     Route: 048
  3. FISH OIL [Concomitant]
     Active Substance: FISH OIL
  4. IRON [Concomitant]
     Active Substance: IRON

REACTIONS (1)
  - Death [Fatal]
